FAERS Safety Report 8816137 (Version 1)
Quarter: 2012Q4

REPORT INFORMATION
  Report Type: 
  Country: CO (occurrence: CO)
  Receive Date: 20120929
  Receipt Date: 20120929
  Transmission Date: 20130627
  Serious: Yes (Hospitalization)
  Sender: FDA-Public Use
  Company Number: CO-ACCORD-014757

PATIENT
  Age: 32 Year
  Sex: Female

DRUGS (7)
  1. PHENOBARBITAL [Suspect]
     Indication: EPILEPSY
     Dosage: Bolus of 1 g, followed by 200 mg/day
  2. TOPIRAMATE [Interacting]
     Indication: EPILEPSY
  3. LEVETIRACETAM [Concomitant]
     Indication: EPILEPSY
  4. CARBAMAZEPINE [Concomitant]
     Indication: EPILEPSY
  5. GABAPENTIN [Concomitant]
     Indication: EPILEPSY
  6. VALPROIC ACID [Interacting]
     Indication: EPILEPSY
     Dosage: Bolus of 1,500 mg
  7. MIDAZOLAM [Concomitant]
     Indication: CONVULSION

REACTIONS (2)
  - Hyperammonaemic encephalopathy [Recovering/Resolving]
  - Potentiating drug interaction [Unknown]
